FAERS Safety Report 7902001-5 (Version None)
Quarter: 2011Q4

REPORT INFORMATION
  Report Type: 
  Country: None (occurrence: None)
  Receive Date: 20111108
  Receipt Date: 20111101
  Transmission Date: 20120403
  Serious: Yes (Hospitalization)
  Sender: FDA-Public Use
  Company Number: US-GLAXOSMITHKLINE-A0939428A

PATIENT
  Age: 16 Year
  Sex: Male
  Weight: 116 kg

DRUGS (5)
  1. CELEXA [Concomitant]
     Dates: start: 20060926, end: 20070601
  2. LAMICTAL [Suspect]
     Indication: BIPOLAR II DISORDER
     Dosage: 200MG PER DAY
     Route: 048
     Dates: start: 20070102, end: 20070601
  3. SOLOTRON [Concomitant]
  4. ATIVAN [Concomitant]
     Dates: end: 20070601
  5. WEIGHT LOSS MEDICATION [Concomitant]

REACTIONS (16)
  - ESCHERICHIA INFECTION [None]
  - DELIRIUM [None]
  - CONDITION AGGRAVATED [None]
  - CANDIDIASIS [None]
  - NIGHTMARE [None]
  - ATELECTASIS [None]
  - DRUG HYPERSENSITIVITY [None]
  - HYPERTENSION [None]
  - ANXIETY [None]
  - STEVENS-JOHNSON SYNDROME [None]
  - CHEST PAIN [None]
  - SLEEP APNOEA SYNDROME [None]
  - METABOLIC ACIDOSIS [None]
  - STAPHYLOCOCCAL INFECTION [None]
  - HALLUCINATION [None]
  - TACHYCARDIA [None]
